FAERS Safety Report 10897116 (Version 1)
Quarter: 2015Q1

REPORT INFORMATION
  Report Type: Spontaneous
  Country: None (occurrence: None)
  Receive Date: 20150302
  Receipt Date: 20150302
  Transmission Date: 20150721
  Serious: No
  Sender: FDA-Public Use
  Company Number: None

PATIENT
  Age: 46 Year
  Sex: Male

DRUGS (1)
  1. NIACIN ER [Suspect]
     Active Substance: NIACIN
     Dosage: 1 TABLET
     Route: 048
     Dates: start: 20141223, end: 20150123

REACTIONS (2)
  - Product substitution issue [None]
  - Blood cholesterol increased [None]

NARRATIVE: CASE EVENT DATE: 20141223
